FAERS Safety Report 5447376-4 (Version None)
Quarter: 2007Q3

REPORT INFORMATION
  Report Type: 
  Country: None (occurrence: None)
  Receive Date: 20070910
  Receipt Date: 20070829
  Transmission Date: 20080115
  Serious: Yes (Hospitalization)
  Sender: FDA-Public Use
  Company Number: FR-AVENTIS-200712758FR

PATIENT
  Age: 45 Year
  Sex: Female

DRUGS (2)
  1. BIRODOGYL [Suspect]
     Route: 048
     Dates: start: 20070804, end: 20070804
  2. PENICILLIN [Concomitant]
     Dates: start: 20070803, end: 20070804

REACTIONS (8)
  - ACUTE GENERALISED EXANTHEMATOUS PUSTULOSIS [None]
  - ANGIOEDEMA [None]
  - DERMATITIS EXFOLIATIVE [None]
  - EOSINOPHILIA [None]
  - GAMMA-GLUTAMYLTRANSFERASE INCREASED [None]
  - LIVER INJURY [None]
  - PYREXIA [None]
  - TRANSAMINASES INCREASED [None]
